FAERS Safety Report 24766607 (Version 1)
Quarter: 2024Q4

REPORT INFORMATION
  Report Type: Spontaneous
  Country: CN (occurrence: CN)
  Receive Date: 20241223
  Receipt Date: 20241223
  Transmission Date: 20250114
  Serious: Yes (Hospitalization)
  Sender: FERRING
  Company Number: CN-FERRINGPH-2024FE07173

PATIENT

DRUGS (3)
  1. FIRMAGON [Suspect]
     Active Substance: DEGARELIX ACETATE
     Indication: Prostate cancer
     Dosage: 80 MG
     Route: 058
     Dates: start: 20241114
  2. FIRMAGON [Suspect]
     Active Substance: DEGARELIX ACETATE
     Dosage: 120 MG
     Route: 058
     Dates: start: 20241017, end: 20241018
  3. REZVILUTAMIDE [Suspect]
     Active Substance: REZVILUTAMIDE
     Indication: Prostate cancer
     Dosage: 240 MG, DAILY
     Route: 048
     Dates: start: 20241017, end: 20241128

REACTIONS (1)
  - Liver injury [Recovering/Resolving]

NARRATIVE: CASE EVENT DATE: 20241202
